FAERS Safety Report 13687925 (Version 1)
Quarter: 2017Q2

REPORT INFORMATION
  Report Type: Spontaneous
  Country: FR (occurrence: FR)
  Receive Date: 20170626
  Receipt Date: 20170626
  Transmission Date: 20170830
  Serious: Yes (Other)
  Sender: FDA-Public Use
  Company Number: FR-ROCHE-1953317

PATIENT
  Age: 55 Year
  Sex: Male

DRUGS (4)
  1. OXALIPLATINE [Suspect]
     Active Substance: OXALIPLATIN
     Indication: ADENOCARCINOMA OF COLON
     Dosage: AT DAY 1 AND DAY 2, CYCLES PLANNED EVERY 2 WEEKS
     Route: 041
     Dates: start: 20170502
  2. FOLINIC ACID [Suspect]
     Active Substance: LEUCOVORIN
     Indication: ADENOCARCINOMA OF COLON
     Dosage: AT DAY 1 AND DAY 2, CYCLES PLANNED EVERY 2 WEEKS
     Route: 041
     Dates: start: 20170502
  3. AVASTIN [Suspect]
     Active Substance: BEVACIZUMAB
     Indication: ADENOCARCINOMA OF COLON
     Dosage: AVASTIN 25MG/ML?AT DAY 1 AND DAY 2, CYCLES PLANNED EVERY 2 WEEKS
     Route: 041
     Dates: start: 20170502
  4. FLUOROURACILE [Suspect]
     Active Substance: FLUOROURACIL
     Indication: ADENOCARCINOMA OF COLON
     Dosage: AT DAY 1 AND DAY 2, CYCLES PLANNED EVERY 2 WEEKS
     Route: 041
     Dates: start: 20170502

REACTIONS (2)
  - Pruritus [Recovered/Resolved]
  - Urticaria [Recovered/Resolved]

NARRATIVE: CASE EVENT DATE: 20170506
